FAERS Safety Report 7532240-7 (Version None)
Quarter: 2011Q2

REPORT INFORMATION
  Report Type: 
  Country: None (occurrence: None)
  Receive Date: 20110608
  Receipt Date: 20110601
  Transmission Date: 20111010
  Serious: Yes (Hospitalization)
  Sender: FDA-Public Use
  Company Number: PHHY2011IT47255

PATIENT
  Sex: Male

DRUGS (2)
  1. DELORAZEPAM [Suspect]
     Dosage: UNK
  2. AMOXICILLIN + CLAVULANATE POTASSIUM [Suspect]

REACTIONS (3)
  - BRADYPHRENIA [None]
  - SOPOR [None]
  - BRADYKINESIA [None]
